FAERS Safety Report 5335601-X (Version None)
Quarter: 2007Q2

REPORT INFORMATION
  Report Type: 
  Country: None (occurrence: None)
  Receive Date: 20070526
  Receipt Date: 20070521
  Transmission Date: 20071010
  Serious: Yes (Life-Threatening)
  Sender: FDA-Public Use
  Company Number: FR-PFIZER INC-2007041395

PATIENT
  Age: 68 Year
  Sex: Male

DRUGS (8)
  1. AMLOR [Suspect]
     Route: 048
  2. DILTIAZEM [Suspect]
     Route: 048
  3. LOPRESSOR [Suspect]
     Route: 048
  4. NISISCO [Suspect]
     Route: 048
  5. KARDEGIC [Concomitant]
  6. CRESTOR [Concomitant]
  7. MIXTARD HUMAN 70/30 [Concomitant]
  8. LASIX [Concomitant]

REACTIONS (4)
  - BRADYCARDIA [None]
  - CARDIAC ARREST [None]
  - HYPERKALAEMIA [None]
  - RENAL FAILURE ACUTE [None]
